FAERS Safety Report 8882475 (Version 3)
Quarter: 2013Q1

REPORT INFORMATION
  Report Type: Spontaneous
  Country: US (occurrence: US)
  Receive Date: 20121102
  Receipt Date: 20130107
  Transmission Date: 20140127
  Serious: No
  Sender: FDA-Public Use
  Company Number: US-009507513-1211USA000248

PATIENT
  Sex: Male

DRUGS (5)
  1. RIBAVIRIN [Suspect]
     Indication: HEPATITIS C
     Dosage: 1200 MG, QD
     Route: 048
     Dates: start: 20121013, end: 20121221
  2. RIBAVIRIN [Suspect]
     Dosage: 800 MG, QD
  3. RIBAVIRIN [Suspect]
     Dosage: 400 MG, BID
  4. VICTRELIS [Suspect]
     Indication: HEPATITIS C
     Dosage: UNK
     Dates: start: 20121104, end: 20121221
  5. PEGASYS [Suspect]
     Indication: HEPATITIS C
     Dosage: UNK
     Dates: start: 20121013, end: 20121221

REACTIONS (8)
  - Injection site pruritus [Unknown]
  - Pruritus [Unknown]
  - Crying [Unknown]
  - Anger [Unknown]
  - Full blood count decreased [Unknown]
  - Blood disorder [Recovering/Resolving]
  - Asthenia [Recovering/Resolving]
  - Dizziness [Recovering/Resolving]
